FAERS Safety Report 18954196 (Version 1)
Quarter: 2021Q1

REPORT INFORMATION
  Report Type: Other
  Country: CA (occurrence: CA)
  Receive Date: 20210301
  Receipt Date: 20210301
  Transmission Date: 20210420
  Serious: Yes (Other)
  Sender: FDA-Public Use
  Company Number: CA-APOTEX-2021AP003822

PATIENT
  Age: 43 Year
  Sex: Female
  Weight: 95 kg

DRUGS (13)
  1. ARNUITY ELLIPTA [Suspect]
     Active Substance: FLUTICASONE FUROATE
     Indication: PRODUCT USED FOR UNKNOWN INDICATION
     Dosage: 1 DOSAGE FORM, QD
  2. PREDNISONE. [Suspect]
     Active Substance: PREDNISONE
     Indication: ASTHMA
     Dosage: UNK
     Route: 065
  3. AVAMYS [Suspect]
     Active Substance: FLUTICASONE FUROATE
     Indication: PRODUCT USED FOR UNKNOWN INDICATION
     Dosage: UNK
     Route: 065
  4. SYMBICORT [Suspect]
     Active Substance: BUDESONIDE\FORMOTEROL FUMARATE DIHYDRATE
     Indication: PRODUCT USED FOR UNKNOWN INDICATION
     Dosage: 2 DOSAGE FORM
  5. VENTOLIN [Suspect]
     Active Substance: ALBUTEROL SULFATE
     Indication: ASTHMA
     Dosage: 4 DOSAGE FORM
  6. FLUTICASONE FUROATE;VILANTEROL TRIFENATATE [Suspect]
     Active Substance: FLUTICASONE FUROATE\VILANTEROL TRIFENATATE
     Indication: ASTHMA
     Dosage: 1 DOSAGE FORM, QD
  7. TERBUTALINE SULFATE. [Concomitant]
     Active Substance: TERBUTALINE SULFATE
     Indication: PRODUCT USED FOR UNKNOWN INDICATION
     Dosage: UNK
     Route: 065
  8. NUCALA [Suspect]
     Active Substance: MEPOLIZUMAB
     Indication: ASTHMA
     Dosage: 100 MILLIGRAM
     Route: 042
  9. SALBUTAMOL/IPRATROPIUM [Suspect]
     Active Substance: ALBUTEROL\IPRATROPIUM
     Indication: PRODUCT USED FOR UNKNOWN INDICATION
     Dosage: UNK UNK, QID
  10. AZITHROMYCIN ANHYDROUS. [Concomitant]
     Active Substance: AZITHROMYCIN ANHYDROUS
     Indication: PRODUCT USED FOR UNKNOWN INDICATION
     Dosage: 500 MILLIGRAM
     Route: 048
  11. NUCALA [Suspect]
     Active Substance: MEPOLIZUMAB
     Indication: PRODUCT USED FOR UNKNOWN INDICATION
  12. TIOTROPIUM [Suspect]
     Active Substance: TIOTROPIUM
     Indication: PRODUCT USED FOR UNKNOWN INDICATION
     Dosage: 2 DOSAGE FORM, QD
  13. ATROVENT [Suspect]
     Active Substance: IPRATROPIUM BROMIDE
     Indication: PRODUCT USED FOR UNKNOWN INDICATION
     Dosage: 4 DOSAGE FORM

REACTIONS (30)
  - Appetite disorder [Unknown]
  - Blood immunoglobulin E increased [Unknown]
  - Nasal polyps [Unknown]
  - Rhinitis allergic [Unknown]
  - Rhinorrhoea [Unknown]
  - Sleep disorder due to a general medical condition [Unknown]
  - Asthma [Unknown]
  - Cough [Unknown]
  - Nasal congestion [Unknown]
  - Obstructive airways disorder [Unknown]
  - Dyspnoea exertional [Unknown]
  - Exercise tolerance decreased [Unknown]
  - Lacrimation increased [Unknown]
  - Wheezing [Unknown]
  - Urinary tract infection [Unknown]
  - Lower respiratory tract infection [Unknown]
  - Dyspnoea [Unknown]
  - Forced expiratory volume abnormal [Unknown]
  - Lung disorder [Unknown]
  - Respiratory distress [Unknown]
  - Hyperhidrosis [Unknown]
  - Sinusitis [Unknown]
  - Productive cough [Unknown]
  - Total lung capacity increased [Unknown]
  - Oral candidiasis [Unknown]
  - Therapeutic product effect incomplete [Unknown]
  - Chest discomfort [Unknown]
  - Gastroenteritis viral [Unknown]
  - Eye pruritus [Unknown]
  - Paranasal sinus discomfort [Unknown]
